FAERS Safety Report 7217839-X (Version None)
Quarter: 2011Q1

REPORT INFORMATION
  Report Type: 
  Country: None (occurrence: None)
  Receive Date: 20110110
  Receipt Date: 20110104
  Transmission Date: 20110831
  Serious: Yes (Death, Hospitalization)
  Sender: FDA-Public Use
  Company Number: PHHY2011CH01040

PATIENT
  Age: 99 Year
  Sex: Female

DRUGS (2)
  1. CLOZAPINE [Suspect]
     Dosage: 50 MG, UNK
  2. MIDAZOLAM HCL [Concomitant]

REACTIONS (6)
  - HEART RATE INCREASED [None]
  - LOSS OF CONSCIOUSNESS [None]
  - HYPOPNOEA [None]
  - WRONG DRUG ADMINISTERED [None]
  - ANTIPSYCHOTIC DRUG LEVEL ABOVE THERAPEUTIC [None]
  - BLOOD PRESSURE INCREASED [None]
